FAERS Safety Report 16967813 (Version 1)
Quarter: 2019Q4

REPORT INFORMATION
  Report Type: Spontaneous
  Country: US (occurrence: US)
  Receive Date: 20191028
  Receipt Date: 20191028
  Transmission Date: 20200122
  Serious: Yes (Death, Hospitalization, Other)
  Sender: FDA-Public Use
  Company Number: US-MYLANLABS-2019M1100670

PATIENT
  Age: 54 Year
  Sex: Male

DRUGS (1)
  1. AZATHIOPRINE. [Suspect]
     Active Substance: AZATHIOPRINE
     Indication: DYSPNOEA
     Dosage: 3 DOSAGE FORM, BID (TWO TABLETS DAILY IN THE MORNING AND ONE TABLET DAILY)
     Route: 048
     Dates: start: 20190513

REACTIONS (5)
  - Brain oedema [Fatal]
  - Confusional state [Unknown]
  - Dyspnoea [Unknown]
  - Blood glucose increased [Unknown]
  - Vasculitis [Unknown]

NARRATIVE: CASE EVENT DATE: 2019
